FAERS Safety Report 10868609 (Version 1)
Quarter: 2015Q1

REPORT INFORMATION
  Report Type: Spontaneous
  Country: JP (occurrence: JP)
  Receive Date: 20150225
  Receipt Date: 20150225
  Transmission Date: 20150721
  Serious: Yes (Other)
  Sender: FDA-Public Use
  Company Number: JP-BAYER-2015-026931

PATIENT
  Age: 87 Year
  Sex: Male

DRUGS (2)
  1. BAYASPIRIN [Interacting]
     Active Substance: ASPIRIN
     Route: 048
  2. XARELTO [Suspect]
     Active Substance: RIVAROXABAN
     Route: 048

REACTIONS (3)
  - Traumatic haemorrhage [None]
  - Epistaxis [None]
  - Drug interaction [None]
